FAERS Safety Report 8170511 (Version 3)
Quarter: 2013Q2

REPORT INFORMATION
  Report Type: Spontaneous
  Country: GB (occurrence: GB)
  Receive Date: 20111006
  Receipt Date: 20130516
  Transmission Date: 20140414
  Serious: Yes (Other)
  Sender: FDA-Public Use
  Company Number: GB-PFIZER INC-2011232017

PATIENT
  Age: 69 Year
  Sex: Male

DRUGS (1)
  1. SIROLIMUS [Suspect]
     Dosage: UNK

REACTIONS (3)
  - Renal failure chronic [Unknown]
  - Dysphagia [Unknown]
  - Liver transplant rejection [Unknown]
